FAERS Safety Report 7647686-6 (Version None)
Quarter: 2011Q3

REPORT INFORMATION
  Report Type: 
  Country: None (occurrence: None)
  Receive Date: 20110801
  Receipt Date: 20110801
  Transmission Date: 20111222
  Serious: Yes (Other)
  Sender: FDA-Public Use
  Company Number: None

PATIENT
  Age: 17 Year
  Sex: Female
  Weight: 42.637 kg

DRUGS (4)
  1. TRILEPTAL [Suspect]
     Indication: AFFECTIVE DISORDER
     Dosage: 150 MG
     Route: 048
     Dates: start: 20110612, end: 20110621
  2. ABILIFY [Concomitant]
  3. CELEXA [Concomitant]
  4. ADDERALL 10 [Concomitant]

REACTIONS (1)
  - RASH PRURITIC [None]
